FAERS Safety Report 6925923-0 (Version None)
Quarter: 2010Q3

REPORT INFORMATION
  Report Type: 
  Country: None (occurrence: None)
  Receive Date: 20100816
  Receipt Date: 20100806
  Transmission Date: 20110219
  Serious: Yes (Hospitalization, Other)
  Sender: FDA-Public Use
  Company Number: PHHY2010MX52053

PATIENT
  Sex: Male

DRUGS (4)
  1. STALEVO 100 [Suspect]
     Dosage: 100/25/200 MG, 1 TABLET PER DAY
     Dates: start: 20080901, end: 20091201
  2. STALEVO 100 [Suspect]
     Dosage: 100/25/200 MG, 3 TABLETS PE RDAY
     Dates: start: 20091201
  3. EXELON [Concomitant]
  4. UNIVOL [Concomitant]
     Dosage: UNK

REACTIONS (4)
  - GASTROINTESTINAL DISORDER [None]
  - GASTROINTESTINAL TUBE INSERTION [None]
  - HIP SURGERY [None]
  - POST PROCEDURAL COMPLICATION [None]
